FAERS Safety Report 22595773 (Version 1)
Quarter: 2023Q2

REPORT INFORMATION
  Report Type: Spontaneous
  Country: US (occurrence: None)
  Receive Date: 20230612
  Receipt Date: 20230612
  Transmission Date: 20230721
  Serious: Yes (Other)
  Sender: FDA-Public Use
  Company Number: None

PATIENT
  Age: 69 Year
  Sex: Male

DRUGS (1)
  1. LENALIDOMIDE [Suspect]
     Active Substance: LENALIDOMIDE
     Indication: Plasma cell myeloma
     Dosage: 10MG QD ORAL?
     Route: 048
     Dates: start: 20180528

REACTIONS (3)
  - Acute respiratory failure [None]
  - Deep vein thrombosis [None]
  - Lung infiltration [None]

NARRATIVE: CASE EVENT DATE: 20230519
